FAERS Safety Report 9220369 (Version 1)
Quarter: 2013Q2

REPORT INFORMATION
  Report Type: Spontaneous
  Country: IN (occurrence: IN)
  Receive Date: 20130409
  Receipt Date: 20130409
  Transmission Date: 20140414
  Serious: Yes (Death)
  Sender: FDA-Public Use
  Company Number: IN-ROCHE-1208040

PATIENT
  Age: 45 Year
  Sex: Male

DRUGS (1)
  1. METALYSE [Suspect]
     Indication: ACUTE MYOCARDIAL INFARCTION
     Route: 042
     Dates: start: 20110601, end: 20110601

REACTIONS (2)
  - Cardiogenic shock [Fatal]
  - Acute myocardial infarction [Fatal]
